FAERS Safety Report 8769118 (Version 1)
Quarter: 2012Q4

REPORT INFORMATION
  Report Type: 
  Country: US (occurrence: US)
  Receive Date: 20120904
  Receipt Date: 20120904
  Transmission Date: 20130627
  Serious: Yes (Hospitalization)
  Sender: FDA-Public Use
  Company Number: US-ELI_LILLY_AND_COMPANY-US201205010056

PATIENT
  Sex: Female
  Weight: 69.62 kg

DRUGS (1)
  1. GEMZAR [Suspect]
     Indication: BREAST CANCER
     Dosage: 2200 mg, 2 weeks on and 1 week off
     Dates: start: 20110518

REACTIONS (2)
  - Hospitalisation [Unknown]
  - No therapeutic response [Unknown]
